FAERS Safety Report 9225992 (Version 1)
Quarter: 2013Q2

REPORT INFORMATION
  Report Type: Spontaneous
  Country: FR (occurrence: FR)
  Receive Date: 20130411
  Receipt Date: 20130411
  Transmission Date: 20140414
  Serious: Yes (Other)
  Sender: FDA-Public Use
  Company Number: FR-009507513-1304FRA003127

PATIENT
  Age: 41 Year
  Sex: Female

DRUGS (2)
  1. NEXPLANON [Suspect]
     Dosage: UNK
     Route: 058
     Dates: start: 20120606
  2. LEVOTHYROX [Concomitant]
     Dosage: UNK
     Dates: start: 2009

REACTIONS (8)
  - Loss of consciousness [Unknown]
  - Malaise [Unknown]
  - Dizziness [Unknown]
  - Blood pressure diastolic increased [Unknown]
  - Blood iron increased [Unknown]
  - Implant site pain [Recovered/Resolved]
  - Vaginal haemorrhage [Recovered/Resolved]
  - Fatigue [Unknown]
